FAERS Safety Report 6442259-5 (Version None)
Quarter: 2009Q4

REPORT INFORMATION
  Report Type: 
  Country: None (occurrence: None)
  Receive Date: 20091116
  Receipt Date: 20091106
  Transmission Date: 20100525
  Serious: Yes (Other)
  Sender: FDA-Public Use
  Company Number: US-BAXTER-2009BH017083

PATIENT
  Sex: Male

DRUGS (8)
  1. DIANEAL [Suspect]
     Indication: PERITONEAL DIALYSIS
     Route: 033
     Dates: start: 20090622, end: 20090911
  2. DIANEAL [Suspect]
     Indication: PERITONEAL DIALYSIS
     Route: 033
     Dates: start: 20090601, end: 20090911
  3. COREG [Concomitant]
     Indication: BLOOD PRESSURE
     Route: 065
  4. NIFEDIPINE [Concomitant]
     Indication: BLOOD PRESSURE
     Route: 065
  5. VALSARTAN [Concomitant]
     Indication: BLOOD PRESSURE
     Route: 065
  6. LANTUS [Concomitant]
     Indication: DRUG USE FOR UNKNOWN INDICATION
     Route: 065
  7. NOVOLOG [Concomitant]
     Indication: DRUG USE FOR UNKNOWN INDICATION
     Route: 065
  8. ENALAPRIL [Concomitant]
     Indication: BLOOD PRESSURE
     Route: 065

REACTIONS (1)
  - BLINDNESS [None]
